FAERS Safety Report 8478949-2 (Version None)
Quarter: 2012Q2

REPORT INFORMATION
  Report Type: 
  Country: None (occurrence: None)
  Receive Date: 20120629
  Receipt Date: 20120620
  Transmission Date: 20120825
  Serious: Yes (Other)
  Sender: FDA-Public Use
  Company Number: HU-JNJFOC-20120604942

PATIENT
  Sex: Female
  Weight: 48 kg

DRUGS (9)
  1. OMEPRAZOLE [Concomitant]
     Indication: CROHN'S DISEASE
     Route: 065
     Dates: start: 20080101
  2. REMICADE [Suspect]
     Route: 042
     Dates: start: 20100101
  3. STEROIDS NOS [Concomitant]
     Indication: PREMEDICATION
     Route: 065
  4. FOLIC ACID [Concomitant]
     Indication: ANAEMIA
     Dosage: 1 TAB DAY
     Route: 065
     Dates: start: 20111201
  5. REMICADE [Suspect]
     Route: 042
     Dates: start: 20120416
  6. REMICADE [Suspect]
     Indication: CROHN'S DISEASE
     Route: 042
     Dates: start: 20120606, end: 20120606
  7. SORBIFER [Concomitant]
     Indication: ANAEMIA
     Dosage: 1 TAB/DAY
     Route: 065
     Dates: start: 20111201
  8. IMURAN [Concomitant]
     Indication: CROHN'S DISEASE
     Route: 065
     Dates: start: 20080101
  9. MESALAMINE [Concomitant]
     Indication: CROHN'S DISEASE
     Route: 048
     Dates: start: 20080101

REACTIONS (2)
  - HYPERSENSITIVITY [None]
  - INFUSION RELATED REACTION [None]
